FAERS Safety Report 5531335-7 (Version None)
Quarter: 2007Q4

REPORT INFORMATION
  Report Type: 
  Country: None (occurrence: None)
  Receive Date: 20071201
  Receipt Date: 20071127
  Transmission Date: 20080405
  Serious: Yes (Hospitalization)
  Sender: FDA-Public Use
  Company Number: JP-ALLERGAN-0712116US

PATIENT
  Sex: Male

DRUGS (4)
  1. BOTOX [Suspect]
     Indication: DRUG USE FOR UNKNOWN INDICATION
     Dosage: 100 UNITS, SINGLE
     Route: 030
     Dates: start: 20071002, end: 20071002
  2. BOTOX [Suspect]
     Indication: DRUG USE FOR UNKNOWN INDICATION
     Dosage: 100 UNITS, SINGLE
     Route: 030
     Dates: start: 20071002, end: 20071002
  3. PANALDINE [Concomitant]
     Indication: CEREBRAL INFARCTION
     Dosage: 100 MG, QD
     Route: 048
  4. APLACE [Concomitant]
     Indication: GASTRITIS
     Dosage: 100 MG, QD
     Route: 048

REACTIONS (1)
  - GASTROINTESTINAL HAEMORRHAGE [None]
